FAERS Safety Report 4826173-4 (Version None)
Quarter: 2005Q4

REPORT INFORMATION
  Report Type: 
  Country: None (occurrence: None)
  Receive Date: 20051014
  Receipt Date: 20050715
  Transmission Date: 20060501
  Serious: No
  Sender: FDA-Public Use
  Company Number: 2005SP001926

PATIENT
  Age: 47 Year
  Sex: Male
  Weight: 129.2752 kg

DRUGS (2)
  1. LUNESTA [Suspect]
     Indication: INSOMNIA
     Dosage: 3MG;HS; ORAL
     Route: 048
     Dates: start: 20050617, end: 20050601
  2. AMBIEN [Concomitant]

REACTIONS (1)
  - DYSGEUSIA [None]
